FAERS Safety Report 19210948 (Version 1)
Quarter: 2021Q2

REPORT INFORMATION
  Report Type: Spontaneous
  Country: US (occurrence: US)
  Receive Date: 20210503
  Receipt Date: 20210503
  Transmission Date: 20210717
  Serious: No
  Sender: FDA-Public Use
  Company Number: None

PATIENT
  Age: 58 Year
  Sex: Female
  Weight: 81.6 kg

DRUGS (14)
  1. FASLODEX [Concomitant]
     Active Substance: FULVESTRANT
  2. MULTI VITAMIN [Concomitant]
     Active Substance: VITAMINS
  3. METOPROLOL SUCCINATE ER [Concomitant]
     Active Substance: METOPROLOL SUCCINATE
  4. PIQRAY [Suspect]
     Active Substance: ALPELISIB
     Indication: BREAST CANCER
     Route: 048
     Dates: start: 20210413, end: 20210503
  5. GLIPIZIDE. [Concomitant]
     Active Substance: GLIPIZIDE
  6. JANUMET [Concomitant]
     Active Substance: METFORMIN HYDROCHLORIDE\SITAGLIPTIN PHOSPHATE
  7. VITAMIN D3 COMPLETE [Concomitant]
  8. JANUVIA [Concomitant]
     Active Substance: SITAGLIPTIN PHOSPHATE
  9. LETROZOLE. [Concomitant]
     Active Substance: LETROZOLE
  10. ASCORBIC ACID. [Concomitant]
     Active Substance: ASCORBIC ACID
  11. EXEMESTANE. [Concomitant]
     Active Substance: EXEMESTANE
  12. MAGNESIUM OXIDE. [Concomitant]
     Active Substance: MAGNESIUM OXIDE
  13. METFORMIN HCL [Concomitant]
     Active Substance: METFORMIN HYDROCHLORIDE
  14. XARELTO [Concomitant]
     Active Substance: RIVAROXABAN

REACTIONS (3)
  - Therapy cessation [None]
  - Drug ineffective [None]
  - Blood glucose increased [None]

NARRATIVE: CASE EVENT DATE: 20210503
